FAERS Safety Report 17009697 (Version 2)
Quarter: 2019Q4

REPORT INFORMATION
  Report Type: Spontaneous
  Country: US (occurrence: US)
  Receive Date: 20191108
  Receipt Date: 20191122
  Transmission Date: 20200122
  Serious: Yes (Hospitalization, Other)
  Sender: FDA-Public Use
  Company Number: US-COLLEGIUM PHARMACEUTICAL, INC.-2019CGM00293

PATIENT
  Age: 30 Year
  Sex: Female
  Weight: 77.55 kg

DRUGS (10)
  1. ADDERALL [Concomitant]
     Active Substance: AMPHETAMINE ASPARTATE\AMPHETAMINE SULFATE\DEXTROAMPHETAMINE SACCHARATE\DEXTROAMPHETAMINE SULFATE
     Dosage: 20 MG, 1X/DAY EVERY MORNING
     Route: 048
  2. LYRICA [Concomitant]
     Active Substance: PREGABALIN
     Dosage: UNK
  3. XTAMPZA ER [Suspect]
     Active Substance: OXYCODONE
     Indication: NEUROMYELITIS OPTICA SPECTRUM DISORDER
     Dosage: 27 MG, 2X/DAY
     Route: 048
     Dates: start: 201908, end: 201910
  4. HYDROCODONE-ACETAMINOPHEN [Concomitant]
     Active Substance: ACETAMINOPHEN\HYDROCODONE
     Dosage: UNK
  5. PAROXETINE. [Concomitant]
     Active Substance: PAROXETINE
     Dosage: 30 MG, 1X/DAY AT BEDTIME
     Route: 048
  6. ZANTAC [Concomitant]
     Active Substance: RANITIDINE HYDROCHLORIDE
  7. LYRICA [Concomitant]
     Active Substance: PREGABALIN
     Dosage: 100 MG, 3X/DAY
     Route: 048
  8. PAROXETINE. [Concomitant]
     Active Substance: PAROXETINE
     Dosage: UNK
  9. PROTONIX [Concomitant]
     Active Substance: PANTOPRAZOLE SODIUM
     Dosage: 40 MG, 1X/DAY
     Route: 048
  10. PERCOCET [Concomitant]
     Active Substance: ACETAMINOPHEN\OXYCODONE HYDROCHLORIDE
     Dosage: 1 TABLETS, EVERY 6 HOURS
     Route: 048

REACTIONS (15)
  - Trigeminal nerve disorder [Unknown]
  - Neuromyelitis optica spectrum disorder [Not Recovered/Not Resolved]
  - Multiple sclerosis [Unknown]
  - Drug hypersensitivity [Recovering/Resolving]
  - Peptic ulcer [Unknown]
  - Metamorphopsia [Unknown]
  - Anxiety [Unknown]
  - Joint swelling [Recovering/Resolving]
  - Neuropathy peripheral [Unknown]
  - Optic neuritis [Unknown]
  - Exostosis [Not Recovered/Not Resolved]
  - Peripheral swelling [Recovering/Resolving]
  - Scar [Not Recovered/Not Resolved]
  - Scab [Unknown]
  - Drug ineffective for unapproved indication [Recovered/Resolved]

NARRATIVE: CASE EVENT DATE: 2019
